FAERS Safety Report 11784214 (Version 5)
Quarter: 2016Q2

REPORT INFORMATION
  Report Type: Report from Study
  Country: BR (occurrence: BR)
  Receive Date: 20151128
  Receipt Date: 20160518
  Transmission Date: 20160815
  Serious: Yes (Hospitalization, Other)
  Sender: FDA-Public Use
  Company Number: PHHY2015BR154733

PATIENT
  Age: 79 Year
  Sex: Female
  Weight: 48 kg

DRUGS (6)
  1. EXELON PATCH [Suspect]
     Active Substance: RIVASTIGMINE
     Indication: MEMORY IMPAIRMENT
     Dosage: 9.5 MG [PATCH 10 (CM)2], QD
     Route: 062
  2. EXELON PATCH [Suspect]
     Active Substance: RIVASTIGMINE
     Indication: CENTRAL NERVOUS SYSTEM STIMULATION
     Dosage: 13.3 MG [PATCH 15 (CM)2], QD
     Route: 062
  3. GLIFAGE [Concomitant]
     Active Substance: METFORMIN HYDROCHLORIDE
     Indication: CENTRAL NERVOUS SYSTEM STIMULATION
     Dosage: 1 DF, QD
     Route: 048
  4. ALOIS [Concomitant]
     Active Substance: MEMANTINE
     Indication: DEMENTIA
  5. ASA [Concomitant]
     Active Substance: ASPIRIN
     Indication: CARDIOVASCULAR EVENT PROPHYLAXIS
     Dosage: 1 DF, QD
     Route: 048
  6. ALOIS [Concomitant]
     Active Substance: MEMANTINE
     Indication: CENTRAL NERVOUS SYSTEM STIMULATION
     Dosage: 2 DF, QD
     Route: 048

REACTIONS (11)
  - Drug ineffective [Unknown]
  - Injury [Unknown]
  - Asthenia [Recovering/Resolving]
  - Weight decreased [Not Recovered/Not Resolved]
  - Femur fracture [Recovered/Resolved]
  - Accident [Recovered/Resolved]
  - Body height decreased [Unknown]
  - Cognitive disorder [Recovering/Resolving]
  - Glaucoma [Not Recovered/Not Resolved]
  - Fall [Recovering/Resolving]
  - Gait apraxia [Recovering/Resolving]

NARRATIVE: CASE EVENT DATE: 201506
